FAERS Safety Report 4386922-9 (Version None)
Quarter: 2004Q2

REPORT INFORMATION
  Report Type: 
  Country: None (occurrence: None)
  Receive Date: 20040629
  Receipt Date: 20040629
  Transmission Date: 20050107
  Serious: No
  Sender: FDA-Public Use
  Company Number: None

PATIENT
  Age: 42 Year
  Sex: Female

DRUGS (2)
  1. SOLU-MEDROL [Suspect]
     Indication: MULTIPLE SCLEROSIS
     Dosage: 1000 MG
     Dates: start: 20040623, end: 20040625
  2. SODIUM CHLORIDE 0.9% IN STERILE PLASTIC CONTAINER [Suspect]
     Dosage: 250 ML
     Dates: start: 20040623, end: 20040625

REACTIONS (3)
  - HYPOTONIA [None]
  - PALLOR [None]
  - TACHYCARDIA [None]
